FAERS Safety Report 25774544 (Version 1)
Quarter: 2025Q3

REPORT INFORMATION
  Report Type: Spontaneous
  Country: US (occurrence: US)
  Receive Date: 20250908
  Receipt Date: 20250908
  Transmission Date: 20251020
  Serious: No
  Sender: BRISTOL-MYERS SQUIBB COMPANY
  Company Number: US-BRISTOL-MYERS SQUIBB COMPANY-2025-053835

PATIENT
  Age: 68 Year
  Sex: Female

DRUGS (2)
  1. LENALIDOMIDE [Suspect]
     Active Substance: LENALIDOMIDE
     Indication: Plasma cell myeloma
     Dosage: TAKE 1 CAPSULE (10MG) BY MOUTH EVERY DAY FOR 21 DAYS ON, 7 DAYS OFF
  2. LENALIDOMIDE [Suspect]
     Active Substance: LENALIDOMIDE
     Dosage: TAKE 1 CAPSULE (10MG) BY MOUTH EVERY DAY FOR 21 DAYS ON, 7 DAYS OFF

REACTIONS (1)
  - Abdominal discomfort [Not Recovered/Not Resolved]
